FAERS Safety Report 5758400-3 (Version None)
Quarter: 2008Q2

REPORT INFORMATION
  Report Type: 
  Country: None (occurrence: None)
  Receive Date: 20080603
  Receipt Date: 20080603
  Transmission Date: 20081010
  Serious: Yes (Disabling)
  Sender: FDA-Public Use
  Company Number: None

PATIENT
  Age: 51 Year
  Sex: Male
  Weight: 108.8633 kg

DRUGS (1)
  1. CREST PRO-HEALTH PROCTOR AND GAMBLE [Suspect]
     Dosage: 2 FL. OZ. ONCE DAILY PO
     Route: 048
     Dates: start: 20071110, end: 20080216

REACTIONS (3)
  - PHARMACEUTICAL PRODUCT COMPLAINT [None]
  - SENSITIVITY OF TEETH [None]
  - TOOTH DISCOLOURATION [None]
